FAERS Safety Report 6248237-3 (Version None)
Quarter: 2009Q2

REPORT INFORMATION
  Report Type: 
  Country: None (occurrence: None)
  Receive Date: 20090629
  Receipt Date: 20090617
  Transmission Date: 20091009
  Serious: Yes (Hospitalization)
  Sender: FDA-Public Use
  Company Number: GB-JNJFOC-20060103271

PATIENT
  Sex: Male

DRUGS (1)
  1. BLINDED; INFLIXIMAB, RECOMBINANT [Suspect]
     Indication: SCIATICA
     Route: 042

REACTIONS (1)
  - SCIATICA [None]
